FAERS Safety Report 19025091 (Version 1)
Quarter: 2021Q1

REPORT INFORMATION
  Report Type: Spontaneous
  Country: US (occurrence: US)
  Receive Date: 20210317
  Receipt Date: 20210317
  Transmission Date: 20210420
  Serious: Yes (Life-Threatening)
  Sender: FDA-Public Use
  Company Number: None

PATIENT
  Age: 26 Year
  Sex: Female
  Weight: 52.6 kg

DRUGS (23)
  1. FECAL MICROBIOTA TRANSPLANTATION PRODUCT [Suspect]
     Active Substance: FECAL MICROBIOTA
     Indication: GRAFT VERSUS HOST DISEASE IN GASTROINTESTINAL TRACT
     Dosage: ?          OTHER FREQUENCY:ONCE;OTHER ROUTE:ESOPHAGOGASTRODUODENOSCOPY?
     Dates: start: 20210311, end: 20210311
  2. RUXOLITINIB [Concomitant]
     Active Substance: RUXOLITINIB
     Dates: start: 20210312, end: 20210312
  3. KEPPRA [Concomitant]
     Active Substance: LEVETIRACETAM
     Dates: start: 20210312
  4. PREVYMIS [Concomitant]
     Active Substance: LETERMOVIR
     Dates: start: 20210312
  5. TACROLIMUS. [Concomitant]
     Active Substance: TACROLIMUS
     Dates: start: 20210311
  6. TIZANIDINE. [Concomitant]
     Active Substance: TIZANIDINE
     Dates: start: 20210311
  7. VACOMYCIN [Concomitant]
     Active Substance: VANCOMYCIN
     Dates: start: 20210312, end: 20210312
  8. NORMAL SALINE BOLUS [Concomitant]
     Dates: start: 20210312, end: 20210312
  9. FECAL MICROBIOTA TRANSPLANTATION PRODUCT [Suspect]
     Active Substance: FECAL MICROBIOTA
     Indication: GRAFT VERSUS HOST DISEASE IN GASTROINTESTINAL TRACT
     Dosage: ?          OTHER FREQUENCY:ONCE;?
     Route: 054
     Dates: start: 20210311, end: 20210311
  10. ZOFRAN [Concomitant]
     Active Substance: ONDANSETRON HYDROCHLORIDE
     Dates: start: 20210311
  11. URSODIOL. [Concomitant]
     Active Substance: URSODIOL
     Dates: start: 20210311
  12. TRIAMCINOLONE [Concomitant]
     Active Substance: TRIAMCINOLONE
     Dates: start: 20210311
  13. PREDNISONE. [Concomitant]
     Active Substance: PREDNISONE
     Dates: start: 20210312
  14. LACTATED RINGERS SOLUTION [Concomitant]
     Active Substance: CALCIUM CHLORIDE\POTASSIUM CHLORIDE\SODIUM CHLORIDE\SODIUM LACTATE
     Dates: start: 20210312, end: 20210312
  15. LEVOPHED [Concomitant]
     Active Substance: NOREPINEPHRINE BITARTRATE
     Dates: start: 20210312, end: 20210312
  16. PROTONIX [Concomitant]
     Active Substance: PANTOPRAZOLE SODIUM
     Dates: start: 20210312
  17. GABAPENTIN. [Concomitant]
     Active Substance: GABAPENTIN
     Dates: start: 20210312
  18. FENTANYL. [Concomitant]
     Active Substance: FENTANYL
     Dates: start: 20210312
  19. DEXTROSE 50% IV [Concomitant]
     Dates: start: 20210312, end: 20210312
  20. IMODIUM [Concomitant]
     Active Substance: LOPERAMIDE HYDROCHLORIDE
     Dates: start: 20210312, end: 20210312
  21. METRONIDAZOLE. [Concomitant]
     Active Substance: METRONIDAZOLE
     Dates: start: 20210312, end: 20210312
  22. POSACONAZOLE [Concomitant]
     Active Substance: POSACONAZOLE
     Dates: start: 20210312
  23. JAKAFI [Concomitant]
     Active Substance: RUXOLITINIB
     Dates: start: 20210312

REACTIONS (1)
  - Sepsis [None]

NARRATIVE: CASE EVENT DATE: 20210312
